FAERS Safety Report 14403879 (Version 1)
Quarter: 2018Q1

REPORT INFORMATION
  Report Type: Spontaneous
  Country: CA (occurrence: CA)
  Receive Date: 20180117
  Receipt Date: 20180117
  Transmission Date: 20180509
  Serious: Yes (Death)
  Sender: FDA-Public Use
  Company Number: CA-PFIZER INC-2018021864

PATIENT
  Age: 65 Year
  Sex: Male

DRUGS (1)
  1. SUTENT [Suspect]
     Active Substance: SUNITINIB MALATE
     Dosage: 50 MG, DAILY FOR 28 DAYS IN A ROW, STOP FOR 14 DAYS THEN REPEAT AS DIRECTED
     Route: 048
     Dates: start: 20171207

REACTIONS (1)
  - Death [Fatal]
